FAERS Safety Report 17820786 (Version 2)
Quarter: 2020Q2

REPORT INFORMATION
  Report Type: Spontaneous
  Country: FR (occurrence: FR)
  Receive Date: 20200525
  Receipt Date: 20200604
  Transmission Date: 20200714
  Serious: Yes (Hospitalization, Other)
  Sender: FDA-Public Use
  Company Number: FR-PFIZER INC-2020202131

PATIENT
  Age: 24 Year
  Sex: Male

DRUGS (13)
  1. ATROPINE. [Suspect]
     Active Substance: ATROPINE
     Dosage: UNK
     Route: 065
  2. FLECAINIDE [Suspect]
     Active Substance: FLECAINIDE
     Dosage: 4 G
     Route: 065
  3. ACETAMINOPHEN. [Suspect]
     Active Substance: ACETAMINOPHEN
     Dosage: 2 G
     Route: 065
  4. BISOPROLOL [Suspect]
     Active Substance: BISOPROLOL
     Dosage: 25 MG
     Route: 065
  5. VALIUM [Suspect]
     Active Substance: DIAZEPAM
     Dosage: 10 MG, 1X/DAY
     Route: 065
  6. SUFENTANIL [Suspect]
     Active Substance: SUFENTANIL
     Dosage: UNK
     Route: 065
  7. VOGALENE [Suspect]
     Active Substance: METOPIMAZINE
     Dosage: 7.5 MG, 20 TABLETS
     Route: 065
  8. DOBUTAMINE [Suspect]
     Active Substance: DOBUTAMINE HYDROCHLORIDE
     Dosage: UNK
     Route: 065
  9. CYMBALTA [Suspect]
     Active Substance: DULOXETINE HYDROCHLORIDE
     Dosage: 60 MG
     Route: 065
  10. VALIUM [Suspect]
     Active Substance: DIAZEPAM
     Dosage: 700 MG
     Route: 065
  11. ANEXATE [Suspect]
     Active Substance: FLUMAZENIL
     Dosage: UNK
     Route: 065
  12. LAMALINE (ACETAMINOPHEN\CAFFEINE\OPIUM) [Suspect]
     Active Substance: ACETAMINOPHEN\CAFFEINE\OPIUM
     Dosage: UNK, 16 TABLETS
  13. LAMALINE (ACETAMINOPHEN\CAFFEINE\OPIUM) [Suspect]
     Active Substance: ACETAMINOPHEN\CAFFEINE\OPIUM
     Dosage: UNK
     Route: 065

REACTIONS (9)
  - Suicide attempt [Unknown]
  - Hypotension [Unknown]
  - Agitation [Unknown]
  - Hypothermia [Unknown]
  - Ventricular tachycardia [Unknown]
  - Drug level increased [Unknown]
  - Bradycardia [Unknown]
  - Loss of consciousness [Unknown]
  - Intentional overdose [Unknown]
